FAERS Safety Report 8221349-0 (Version None)
Quarter: 2012Q1

REPORT INFORMATION
  Report Type: 
  Country: None (occurrence: None)
  Receive Date: 20120320
  Receipt Date: 20120315
  Transmission Date: 20120608
  Serious: Yes (Disabling)
  Sender: FDA-Public Use
  Company Number: PHHY2012IT023339

PATIENT
  Sex: Female

DRUGS (6)
  1. INDERAL LA [Concomitant]
  2. MEDROL [Concomitant]
     Dosage: 16 MG, UNK
     Route: 048
  3. TAXOTERE [Concomitant]
  4. ZOMETA [Suspect]
     Indication: METASTASES TO BONE
     Dosage: 4 MG EVERY 28 DAYS
     Route: 042
     Dates: start: 20080110
  5. ENOXAPARIN SODIUM [Concomitant]
  6. XELODA [Concomitant]
     Dosage: 100 MG, UNK

REACTIONS (2)
  - PAIN IN JAW [None]
  - OSTEONECROSIS [None]
